FAERS Safety Report 21264380 (Version 1)
Quarter: 2022Q3

REPORT INFORMATION
  Report Type: Spontaneous
  Country: US (occurrence: None)
  Receive Date: 20220826
  Receipt Date: 20220826
  Transmission Date: 20221027
  Serious: Yes (Death, Hospitalization)
  Sender: FDA-Public Use
  Company Number: None

PATIENT
  Age: 75 Year
  Sex: Male
  Weight: 64.5 kg

DRUGS (4)
  1. RADIUM RA-223 DICHLORIDE [Suspect]
     Active Substance: RADIUM RA-223 DICHLORIDE
     Dates: end: 20220718
  2. EXTENDED RELEASE MORPHINE [Concomitant]
  3. LUPRON [Concomitant]
     Active Substance: LEUPROLIDE ACETATE
  4. ZOMETA [Concomitant]
     Active Substance: ZOLEDRONIC ACID

REACTIONS (12)
  - Muscular weakness [None]
  - Contrast media reaction [None]
  - COVID-19 pneumonia [None]
  - Loss of personal independence in daily activities [None]
  - Chest pain [None]
  - Back pain [None]
  - Pain in extremity [None]
  - White blood cell count decreased [None]
  - Haemoglobin decreased [None]
  - Platelet count decreased [None]
  - Fibrin D dimer increased [None]
  - Blood sodium decreased [None]

NARRATIVE: CASE EVENT DATE: 20220720
